FAERS Safety Report 6872035-0 (Version None)
Quarter: 2010Q3

REPORT INFORMATION
  Report Type: 
  Country: None (occurrence: None)
  Receive Date: 20100723
  Receipt Date: 20100712
  Transmission Date: 20110219
  Serious: Yes (Other)
  Sender: FDA-Public Use
  Company Number: BR-PFIZER INC-2010086407

PATIENT
  Age: 84 Year
  Sex: Male
  Weight: 79 kg

DRUGS (8)
  1. XALATAN [Suspect]
     Indication: GLAUCOMA
     Dosage: 1 DROP IN EACH EYE
     Route: 047
     Dates: start: 20080101
  2. SIMVASTATIN [Concomitant]
     Indication: BLOOD CHOLESTEROL
     Dosage: UNK
  3. ATACAND [Concomitant]
     Dosage: UNK
     Dates: start: 20060101
  4. BUFFERIN CARDIO [Concomitant]
     Dosage: UNK
  5. GLIMEPIRIDE [Concomitant]
     Indication: DIABETES MELLITUS
     Dosage: UNK
     Dates: start: 20070101
  6. METFORMIN [Concomitant]
     Indication: DIABETES MELLITUS
     Dosage: UNK
     Dates: start: 20070101
  7. HYGROTON [Concomitant]
     Indication: PROPHYLAXIS
     Dosage: UNK
     Dates: start: 20000101
  8. MEMANTINE HYDROCHLORIDE [Concomitant]
     Indication: DEPRESSION
     Dosage: UNK
     Dates: start: 20090101

REACTIONS (2)
  - IRRITABILITY [None]
  - NERVOUSNESS [None]
